FAERS Safety Report 18898344 (Version 2)
Quarter: 2021Q1

REPORT INFORMATION
  Report Type: Report from Study
  Country: None (occurrence: US)
  Receive Date: 20210216
  Receipt Date: 20210301
  Transmission Date: 20210420
  Serious: Yes (Hospitalization, Other)
  Sender: FDA-Public Use
  Company Number: US-ABBVIE-21K-163-3776448-00

PATIENT
  Age: 48 Year
  Sex: Female
  Weight: 79.45 kg

DRUGS (5)
  1. TRYPTOLINE [Concomitant]
     Indication: FIBROMYALGIA
  2. SYNTHROID [Concomitant]
     Active Substance: LEVOTHYROXINE SODIUM
     Indication: HYPOTHYROIDISM
  3. RINVOQ [Suspect]
     Active Substance: UPADACITINIB
     Route: 048
     Dates: start: 202101
  4. RINVOQ [Suspect]
     Active Substance: UPADACITINIB
     Indication: RHEUMATOID ARTHRITIS
     Route: 048
     Dates: start: 2020, end: 202101
  5. CONCERTA [Concomitant]
     Active Substance: METHYLPHENIDATE HYDROCHLORIDE
     Indication: ATTENTION DEFICIT HYPERACTIVITY DISORDER

REACTIONS (3)
  - COVID-19 [Recovered/Resolved]
  - Arthritis [Recovering/Resolving]
  - Gait inability [Recovering/Resolving]

NARRATIVE: CASE EVENT DATE: 202011
